FAERS Safety Report 24252949 (Version 5)
Quarter: 2025Q2

REPORT INFORMATION
  Report Type: Report from Study
  Country: CA (occurrence: CA)
  Receive Date: 20240827
  Receipt Date: 20250524
  Transmission Date: 20250716
  Serious: Yes (Death, Hospitalization, Other)
  Sender: CSL BEHRING
  Company Number: CA-BEH-2023165199

PATIENT
  Age: 84 Year
  Sex: Female
  Weight: 70.295 kg

DRUGS (14)
  1. HIZENTRA [Suspect]
     Active Substance: HUMAN IMMUNOGLOBULIN G
     Indication: Primary immunodeficiency syndrome
     Dosage: 5 GRAM, QW
     Route: 065
     Dates: start: 20230321
  2. HIZENTRA [Suspect]
     Active Substance: HUMAN IMMUNOGLOBULIN G
     Dosage: 6 G, QW
     Route: 065
  3. HIZENTRA [Suspect]
     Active Substance: HUMAN IMMUNOGLOBULIN G
     Dosage: 6 G, QW(STRENGTH: 1-2G. 1-4G)
     Route: 058
     Dates: start: 20230321
  4. HUMAN IMMUNOGLOBULIN G [Suspect]
     Active Substance: HUMAN IMMUNOGLOBULIN G
     Indication: Product used for unknown indication
     Route: 058
  5. CUVITRU [Suspect]
     Active Substance: HUMAN IMMUNOGLOBULIN G
     Route: 058
     Dates: start: 202310
  6. MYRBETRIQ [Concomitant]
     Active Substance: MIRABEGRON
  7. DILOTAB [PARACETAMOL;PSEUDOEPHEDRINE HYDROCHLORIDE] [Concomitant]
  8. ATROVENT [Concomitant]
     Active Substance: IPRATROPIUM BROMIDE
  9. BUDESONIDE [Concomitant]
     Active Substance: BUDESONIDE
  10. CANDESARTAN [Concomitant]
     Active Substance: CANDESARTAN
  11. ROSUVASTATIN [Concomitant]
     Active Substance: ROSUVASTATIN
  12. FUROSEMIDE [Concomitant]
     Active Substance: FUROSEMIDE
  13. BREZTRI [Concomitant]
     Active Substance: BUDESONIDE\FORMOTEROL\GLYCOPYRROLATE
  14. ALBUTEROL [Concomitant]
     Active Substance: ALBUTEROL

REACTIONS (13)
  - Death [Fatal]
  - Hypogammaglobulinaemia [Unknown]
  - Emergency care [Unknown]
  - Chronic obstructive pulmonary disease [Unknown]
  - Wrong product administered [Unknown]
  - Myalgia [Recovered/Resolved]
  - Headache [Recovered/Resolved]
  - Pyrexia [Recovered/Resolved]
  - Infection [Unknown]
  - Chronic obstructive pulmonary disease [Unknown]
  - Product dose omission issue [Unknown]
  - Increased bronchial secretion [Unknown]
  - Off label use [Unknown]

NARRATIVE: CASE EVENT DATE: 20231201
